FAERS Safety Report 5384598-5 (Version None)
Quarter: 2007Q3

REPORT INFORMATION
  Report Type: 
  Country: None (occurrence: None)
  Receive Date: 20070711
  Receipt Date: 20070629
  Transmission Date: 20080115
  Serious: Yes (Hospitalization)
  Sender: FDA-Public Use
  Company Number: US-SHR-US-2007-024341

PATIENT
  Age: 73 Year
  Sex: Female

DRUGS (2)
  1. BETASERON [Suspect]
     Route: 058
     Dates: start: 19981202, end: 20040501
  2. BETASERON [Suspect]
     Dosage: 2 MIU, EVERY 2D
     Route: 058
     Dates: start: 20070614, end: 20070625

REACTIONS (1)
  - HAEMATOCHEZIA [None]
